FAERS Safety Report 26143310 (Version 2)
Quarter: 2025Q4

REPORT INFORMATION
  Report Type: Report from Study
  Country: CH (occurrence: CH)
  Receive Date: 20251211
  Receipt Date: 20251216
  Transmission Date: 20260118
  Serious: Yes (Other)
  Sender: ABBVIE
  Company Number: CH-ABBVIE-6574177

PATIENT
  Age: 82 Year
  Sex: Female
  Weight: 52 kg

DRUGS (5)
  1. CARBIDOPA\LEVODOPA [Suspect]
     Active Substance: CARBIDOPA\LEVODOPA
     Indication: Parkinson^s disease
     Dosage: DUODOPA GEL 3 ML
     Route: 050
     Dates: start: 20211207
  2. CARBIDOPA\LEVODOPA [Suspect]
     Active Substance: CARBIDOPA\LEVODOPA
     Dosage: DUODOPA GEL 1.8 ML, LAST ADMIN DATE: 2025
     Route: 050
     Dates: start: 20250915
  3. CARBIDOPA\LEVODOPA [Suspect]
     Active Substance: CARBIDOPA\LEVODOPA
     Dosage: MD 3ML, CRD 1.7ML/H, CRN 1.7ML/H, ED 1ML, FIRST ADMIN DATE: 2025
     Route: 050
  4. CLOMETHIAZOLE [Concomitant]
     Active Substance: CLOMETHIAZOLE
     Indication: Product used for unknown indication
  5. RIVASTIGMINE [Suspect]
     Active Substance: RIVASTIGMINE
     Indication: Product used for unknown indication
     Dosage: LAST ADMIN DATE: 2025
     Route: 065
     Dates: start: 20250429

REACTIONS (18)
  - Hip fracture [Unknown]
  - Fall [Unknown]
  - Xerophthalmia [Unknown]
  - Femur fracture [Unknown]
  - Cardiac arrest [Unknown]
  - Polymyalgia rheumatica [Unknown]
  - Dyslipidaemia [Unknown]
  - Age-related macular degeneration [Unknown]
  - Apraxia [Unknown]
  - Disorientation [Unknown]
  - Myocardial ischaemia [Unknown]
  - Acute myocardial infarction [Unknown]
  - Ventricular tachycardia [Unknown]
  - Sinus disorder [Unknown]
  - Atrial fibrillation [Unknown]
  - Femoral neck fracture [Unknown]
  - Parkinson^s disease [Unknown]
  - Slipping rib syndrome [Unknown]

NARRATIVE: CASE EVENT DATE: 20230830
